FAERS Safety Report 18524488 (Version 9)
Quarter: 2022Q2

REPORT INFORMATION
  Report Type: Report from Study
  Country: FI (occurrence: FI)
  Receive Date: 20201119
  Receipt Date: 20220510
  Transmission Date: 20220721
  Serious: Yes (Hospitalization)
  Sender: FDA-Public Use
  Company Number: FI-PFIZER INC-2020448571

PATIENT
  Age: 73 Year
  Sex: Male
  Weight: 70 kg

DRUGS (9)
  1. TALAZOPARIB [Suspect]
     Active Substance: TALAZOPARIB
     Indication: Prostate cancer metastatic
     Dosage: UNK UNK, 1X/DAY
     Route: 048
     Dates: start: 20200707, end: 20201004
  2. ENZALUTAMIDE [Suspect]
     Active Substance: ENZALUTAMIDE
     Indication: Prostate cancer metastatic
     Dosage: 160 MG, 1X/DAY
     Route: 048
     Dates: start: 20200707, end: 20201004
  3. INNOHEP [Suspect]
     Active Substance: TINZAPARIN SODIUM
     Indication: Atrial fibrillation
     Dosage: 12000 IU, 1X/DAY. INJECTION
     Route: 058
     Dates: start: 20200930, end: 20201005
  4. NORVASC [Concomitant]
     Active Substance: AMLODIPINE BESYLATE
     Indication: Hypertension
     Dosage: UNK
     Dates: start: 20140101
  5. ATORVASTATIN CALCIUM [Concomitant]
     Active Substance: ATORVASTATIN CALCIUM
     Indication: Hypercholesterolaemia
     Dosage: UNK
     Dates: start: 20140101
  6. EDOXABAN TOSYLATE [Concomitant]
     Active Substance: EDOXABAN TOSYLATE
     Indication: Atrial fibrillation
     Dosage: 30 MG, 1X/DAY
     Route: 048
     Dates: start: 20200703, end: 20200929
  7. BISOPROLOL [Concomitant]
     Active Substance: BISOPROLOL
     Indication: Hypertension
     Dosage: UNK
     Dates: start: 20181101
  8. CALCIUM\CHOLECALCIFEROL [Concomitant]
     Active Substance: CALCIUM\CHOLECALCIFEROL
     Indication: Supplementation therapy
     Dosage: UNK
     Dates: start: 20200301
  9. NITROFUR-C [Concomitant]
     Indication: Infection prophylaxis
     Dosage: UNK
     Dates: start: 20200401

REACTIONS (1)
  - Haematuria [Recovered/Resolved]

NARRATIVE: CASE EVENT DATE: 20201005
